FAERS Safety Report 12241981 (Version 1)
Quarter: 2016Q2

REPORT INFORMATION
  Report Type: Spontaneous
  Country: CA (occurrence: None)
  Receive Date: 20160405
  Receipt Date: 20160405
  Transmission Date: 20160815
  Serious: Yes (Hospitalization)
  Sender: FDA-Public Use
  Company Number: None

PATIENT
  Age: 44 Year
  Sex: Male
  Weight: 90 kg

DRUGS (2)
  1. 5-FLUOROURACIL (5-FU) [Suspect]
     Active Substance: FLUOROURACIL
     Dates: end: 20160319
  2. CISPLATIN. [Suspect]
     Active Substance: CISPLATIN
     Dates: end: 20160315

REACTIONS (12)
  - Hypokalaemia [None]
  - Nausea [None]
  - Hypocalcaemia [None]
  - Febrile neutropenia [None]
  - Anaemia [None]
  - Lymphocyte count decreased [None]
  - Mucosal inflammation [None]
  - Pulmonary embolism [None]
  - Respiratory distress [None]
  - Vomiting [None]
  - Platelet count decreased [None]
  - Aspiration [None]

NARRATIVE: CASE EVENT DATE: 20160326
